FAERS Safety Report 8846171 (Version 1)
Quarter: 2012Q4

REPORT INFORMATION
  Report Type: 
  Country: US (occurrence: US)
  Receive Date: 20121017
  Receipt Date: 20121017
  Transmission Date: 20130627
  Serious: Yes (Other)
  Sender: FDA-Public Use
  Company Number: US-PURDUE-USA-2012-0094463

PATIENT
  Sex: Male

DRUGS (2)
  1. OXYCONTIN (NDA 22-272) [Suspect]
     Indication: PRODUCT USED FOR UNKNOWN INDICATION
     Dosage: 40 mg, q6h
     Route: 048
  2. OXYCONTIN (NDA 22-272) [Suspect]
     Dosage: 10 mg, q6h
     Route: 048

REACTIONS (8)
  - Non-Hodgkin^s lymphoma [Unknown]
  - Cardiac failure congestive [Unknown]
  - Atrial fibrillation [Unknown]
  - Ankylosing spondylitis [Unknown]
  - Fibromyalgia [Unknown]
  - Loss of consciousness [Unknown]
  - Weight decreased [Unknown]
  - Visual impairment [Unknown]
